FAERS Safety Report 21170168 (Version 1)
Quarter: 2022Q3

REPORT INFORMATION
  Report Type: Spontaneous
  Country: SG (occurrence: SG)
  Receive Date: 20220804
  Receipt Date: 20220804
  Transmission Date: 20221027
  Serious: Yes (Other)
  Sender: FDA-Public Use
  Company Number: SG-MLMSERVICE-20220720-3685033-1

PATIENT
  Age: 51 Year
  Sex: Male

DRUGS (2)
  1. CISPLATIN [Suspect]
     Active Substance: CISPLATIN
     Indication: Nasopharyngeal cancer
  2. GEMCITABINE [Suspect]
     Active Substance: GEMCITABINE
     Indication: Nasopharyngeal cancer

REACTIONS (3)
  - Herpes zoster [Recovering/Resolving]
  - Granuloma skin [Recovering/Resolving]
  - Skin necrosis [Recovering/Resolving]
